FAERS Safety Report 5036203-5 (Version None)
Quarter: 2006Q2

REPORT INFORMATION
  Report Type: 
  Country: None (occurrence: None)
  Receive Date: 20060601
  Receipt Date: 20060405
  Transmission Date: 20061013
  Serious: No
  Sender: FDA-Public Use
  Company Number: US200601005460

PATIENT
  Age: 56 Year
  Sex: Female

DRUGS (7)
  1. CYMBALTA [Suspect]
     Indication: DEPRESSION
     Dosage: SEE IMAGE
     Route: 048
     Dates: start: 20050816, end: 20050910
  2. WELLBUTRIN SR [Concomitant]
  3. BUSPAR /AUS/ (BUSPIRONE HYDROCHLORIDE) [Concomitant]
  4. AMBIEN [Concomitant]
  5. LORAZEPAM [Concomitant]
  6. NEURONTIN [Concomitant]
  7. VICODIN [Concomitant]

REACTIONS (2)
  - ADVERSE DRUG REACTION [None]
  - SUICIDAL IDEATION [None]
